FAERS Safety Report 7439184-X (Version None)
Quarter: 2011Q2

REPORT INFORMATION
  Report Type: 
  Country: None (occurrence: None)
  Receive Date: 20110427
  Receipt Date: 20110329
  Transmission Date: 20111010
  Serious: Yes (Life-Threatening, Hospitalization, Other)
  Sender: FDA-Public Use
  Company Number: US-BAYER-201039137NA

PATIENT
  Age: 28 Year
  Sex: Female
  Weight: 79.819 kg

DRUGS (19)
  1. ASCORBIC ACID [Concomitant]
  2. PREDNISONE [Concomitant]
     Dosage: 20 MG, UNK
     Route: 048
  3. QVAR 40 [Concomitant]
     Dosage: UNK UNK, BID
     Route: 055
  4. ZITHROMAX [Concomitant]
  5. ST. JOHN'S WORT [Concomitant]
  6. FLUOXETINE [Concomitant]
     Dosage: 20 MG, QD
     Route: 048
  7. ALBUTEROL SULFATE AND IPRATROPIUM BROMIDE [Concomitant]
  8. BACTRIM [Concomitant]
  9. MAXALT-MLT [Concomitant]
     Dosage: 10 MG, PRN
  10. YASMIN [Suspect]
     Indication: PRODUCT USED FOR UNKNOWN INDICATION
     Dosage: UNK UNK, UNK
     Route: 048
     Dates: start: 20080601, end: 20081101
  11. AMLODIPINE [Concomitant]
     Indication: HYPERTENSION
     Dosage: 10 MG, QD
     Route: 048
  12. NSAID'S [Concomitant]
     Dosage: UNK UNK, PRN
  13. ACETAMINOPHEN AND HYDROCODONE BITARTRATE [Concomitant]
     Dosage: UNK UNK, PRN
     Route: 048
  14. DIAZEPAM [Concomitant]
     Dosage: 10 MG, HS
     Route: 048
  15. PROMETHAZINE - CODEINE [CODEINE PHOSPHATE,PROMETHAZINE HYDROCHLORIDE] [Concomitant]
     Dosage: UNK UNK, PRN
     Route: 048
  16. LEVOTHROID [Concomitant]
     Dosage: UNK UNK, QD
     Route: 048
  17. PROAIR HFA [Concomitant]
     Dosage: UNK UNK, PRN
     Route: 055
  18. NAPROXEN [Concomitant]
     Dosage: 500 MG, PRN
     Route: 048
  19. FLUTICASONE PROPIONATE [Concomitant]
     Dosage: UNK UNK, QD
     Route: 055

REACTIONS (5)
  - PULMONARY HYPERTENSION [None]
  - PLEURAL EFFUSION [None]
  - PULMONARY EMBOLISM [None]
  - THROMBOSIS [None]
  - LUNG DISORDER [None]
